FAERS Safety Report 9823245 (Version 1)
Quarter: 2014Q1

REPORT INFORMATION
  Report Type: Spontaneous
  Country: US (occurrence: US)
  Receive Date: 20140116
  Receipt Date: 20140116
  Transmission Date: 20141002
  Serious: No
  Sender: FDA-Public Use
  Company Number: US-PURDUE-USA-2013-0108916

PATIENT
  Sex: Female

DRUGS (1)
  1. DILAUDID INJECTION [Suspect]
     Indication: PROCEDURAL PAIN
     Dosage: UNK
     Route: 042
     Dates: start: 20131025

REACTIONS (2)
  - Inadequate analgesia [Unknown]
  - Somnolence [Unknown]
